FAERS Safety Report 19421702 (Version 1)
Quarter: 2021Q2

REPORT INFORMATION
  Report Type: Spontaneous
  Country: DE (occurrence: DE)
  Receive Date: 20210615
  Receipt Date: 20210615
  Transmission Date: 20210717
  Serious: Yes (Hospitalization)
  Sender: FDA-Public Use
  Company Number: DE-AUROBINDO-AUR-APL-2018-035136

PATIENT
  Age: 80 Year
  Sex: Male
  Weight: 73 kg

DRUGS (33)
  1. FLUOROURACIL. [Suspect]
     Active Substance: FLUOROURACIL
     Indication: COLORECTAL CANCER METASTATIC
     Dosage: 748 MG, UNK
     Route: 040
     Dates: start: 20180517
  2. FLUOROURACIL. [Suspect]
     Active Substance: FLUOROURACIL
     Dosage: 4488 MILLIGRAM
     Route: 042
     Dates: start: 20180517
  3. VECTIBIX [Suspect]
     Active Substance: PANITUMUMAB
     Dosage: 350 MILLIGRAM
     Route: 042
     Dates: start: 20181022
  4. LIXIANA [Concomitant]
     Active Substance: EDOXABAN TOSYLATE
     Indication: ATRIAL FLUTTER
     Dosage: 60 MILLIGRAM, DAILY 60 MG, QD
     Route: 048
     Dates: start: 201708
  5. COTRIM FORTE [Concomitant]
     Active Substance: SULFAMETHOXAZOLE\TRIMETHOPRIM
     Indication: URINARY TRACT INFECTION
     Dosage: 960 MG, UNK
     Route: 048
     Dates: start: 20180614, end: 20180620
  6. FOLINIC ACID [Suspect]
     Active Substance: LEUCOVORIN
     Indication: PRODUCT USED FOR UNKNOWN INDICATION
     Dosage: 748 MG, UNK
     Route: 065
     Dates: start: 20180517
  7. FOLINIC ACID [Suspect]
     Active Substance: LEUCOVORIN
     Dosage: 764 MILLIGRAM
     Route: 065
     Dates: start: 20190723
  8. FLUOROURACIL. [Suspect]
     Active Substance: FLUOROURACIL
     Dosage: 4490 MILLIGRAM
     Route: 042
     Dates: start: 20180614
  9. VECTIBIX [Suspect]
     Active Substance: PANITUMUMAB
     Indication: COLORECTAL CANCER METASTATIC
     Dosage: 440 MG, UNK
     Route: 042
     Dates: start: 20180614
  10. VECTIBIX [Suspect]
     Active Substance: PANITUMUMAB
     Dosage: 190 MILLIGRAM
     Route: 042
     Dates: start: 20190219
  11. GLANDOMED [Concomitant]
     Indication: STOMATITIS
     Dosage: 40 ML, AS NECESSARY
     Route: 048
     Dates: start: 201805
  12. FOLINIC ACID [Suspect]
     Active Substance: LEUCOVORIN
     Dosage: 750 MG, UNK
     Route: 065
     Dates: start: 20180614
  13. IRINOTECAN [Suspect]
     Active Substance: IRINOTECAN
     Indication: COLORECTAL CANCER METASTATIC
     Dosage: 336 MG, UNK
     Route: 065
     Dates: start: 20180517
  14. IRINOTECAN [Suspect]
     Active Substance: IRINOTECAN
     Dosage: 343 MILLIGRAM
     Route: 065
     Dates: start: 20190806
  15. FLUOROURACIL. [Suspect]
     Active Substance: FLUOROURACIL
     Dosage: 4600 MILLIGRAM
     Route: 042
     Dates: start: 20190122
  16. VECTIBIX [Suspect]
     Active Substance: PANITUMUMAB
     Dosage: 80 MILLIGRAM
     Route: 042
     Dates: start: 20181031
  17. PANTOZOL [Concomitant]
     Active Substance: PANTOPRAZOLE SODIUM
     Indication: PROPHYLAXIS AGAINST GASTROINTESTINAL ULCER
     Dosage: 40 MILLIGRAM, ONCE A DAY
     Route: 048
     Dates: start: 201805
  18. MCP?RATIOPHARM [Concomitant]
     Active Substance: METOCLOPRAMIDE HYDROCHLORIDE
     Indication: NAUSEA
     Dosage: 30 MG, AS NECESSARY
     Route: 048
     Dates: start: 201806, end: 20180711
  19. FLUOROURACIL. [Suspect]
     Active Substance: FLUOROURACIL
     Dosage: 750 MG, UNK
     Route: 040
     Dates: start: 20180614
  20. NOVAMINSULFON?RATIOPHARM [Concomitant]
     Active Substance: METAMIZOLE
     Indication: PAIN
     Dosage: 500 MG, AS NECESSARY
     Route: 048
     Dates: start: 201806, end: 20180711
  21. DELIX PLUS [Concomitant]
     Active Substance: HYDROCHLOROTHIAZIDE\RAMIPRIL
     Indication: HYPERTENSION
     Dosage: 5 MILLIGRAM, DAILY 5 MG, QD
     Route: 048
     Dates: start: 20171119, end: 20190521
  22. FLUOROURACIL. [Suspect]
     Active Substance: FLUOROURACIL
     Dosage: 4584 MILLIGRAM
     Route: 042
     Dates: start: 20190806
  23. FLUOROURACIL. [Suspect]
     Active Substance: FLUOROURACIL
     Dosage: 4500 MILLIGRAM
     Route: 042
     Dates: start: 20181211
  24. FLUOROURACIL. [Suspect]
     Active Substance: FLUOROURACIL
     Dosage: 4500 UNK
     Route: 042
     Dates: start: 20180614
  25. VECTIBIX [Suspect]
     Active Substance: PANITUMUMAB
     Dosage: 370 MILLIGRAM
     Route: 042
     Dates: start: 20190122
  26. VECTIBIX [Suspect]
     Active Substance: PANITUMUMAB
     Dosage: 230 MILLIGRAM
     Route: 042
     Dates: start: 20190507
  27. VECTIBIX [Suspect]
     Active Substance: PANITUMUMAB
     Dosage: 180 MILLIGRAM
     Route: 042
     Dates: start: 20190319
  28. CANDIO HERMAL [Concomitant]
     Indication: STOMATITIS
     Dosage: 8 ML, AS NECESSARY
     Route: 048
     Dates: start: 201805
  29. DUODART [Concomitant]
     Active Substance: DUTASTERIDE\TAMSULOSIN
     Indication: BENIGN PROSTATIC HYPERPLASIA
     Dosage: 1 UNK, ONCE A DAY
     Route: 048
     Dates: start: 2013
  30. IRINOTECAN [Suspect]
     Active Substance: IRINOTECAN
     Indication: PRODUCT USED FOR UNKNOWN INDICATION
     Dosage: 340 MG, UNK
     Route: 065
     Dates: start: 20180614
  31. MOVICOL [Concomitant]
     Active Substance: POLYETHYLENE GLYCOL 3350\POTASSIUM CHLORIDE\SODIUM BICARBONATE\SODIUM CHLORIDE
     Indication: CONSTIPATION PROPHYLAXIS
     Dosage: 13.81 G, AS NECESSARY
     Route: 048
     Dates: start: 201806, end: 20180711
  32. MACROGOLA [Concomitant]
     Indication: STOMATITIS
     Dosage: 40 ML, AS NECESSARY
     Route: 048
     Dates: start: 201805
  33. ZOPICLONE RATIOPHARM [Concomitant]
     Indication: SLEEP DISORDER
     Dosage: 7.5 MG, AS NECESSARY
     Route: 048
     Dates: start: 201806, end: 20180711

REACTIONS (1)
  - General physical health deterioration [Recovered/Resolved]

NARRATIVE: CASE EVENT DATE: 20180620
